FAERS Safety Report 24452224 (Version 1)
Quarter: 2024Q4

REPORT INFORMATION
  Report Type: Spontaneous
  Country: US (occurrence: US)
  Receive Date: 20241017
  Receipt Date: 20241017
  Transmission Date: 20250114
  Serious: No
  Sender: SUNOVION
  Company Number: US-UROVANT SCIENCES GMBH-202401-URV-000111

PATIENT
  Sex: Female

DRUGS (3)
  1. GEMTESA [Suspect]
     Active Substance: VIBEGRON
     Indication: Hypertonic bladder
     Dosage: 1 TAB, QD
     Route: 048
     Dates: start: 2023
  2. GEMTESA [Suspect]
     Active Substance: VIBEGRON
     Dosage: 1 TAB, QD
     Route: 048
     Dates: start: 20240122
  3. GEMTESA [Suspect]
     Active Substance: VIBEGRON
     Dosage: 1 TAB, QD
     Route: 048
     Dates: start: 20240129

REACTIONS (1)
  - Drug ineffective [Unknown]
